FAERS Safety Report 9589996 (Version 1)
Quarter: 2013Q4

REPORT INFORMATION
  Report Type: Spontaneous
  Country: US (occurrence: US)
  Receive Date: 20131003
  Receipt Date: 20131003
  Transmission Date: 20140711
  Serious: No
  Sender: FDA-Public Use
  Company Number: US-AMGEN-USASP2012073941

PATIENT
  Sex: Female
  Weight: 63.49 kg

DRUGS (8)
  1. ENBREL [Suspect]
     Indication: RHEUMATOID ARTHRITIS
     Dosage: 50 MG, QWK
  2. AMBIEN CR [Concomitant]
     Dosage: 6.25 MG, UNK
  3. METHOTREXATE [Concomitant]
     Dosage: 2.5 MG, UNK
  4. PAROXETIN                          /00830801/ [Concomitant]
     Dosage: 12.5 MG, UNK
  5. OCELLA [Concomitant]
     Dosage: UNK MG, 3-0.03MG
  6. FOLIC ACID [Concomitant]
     Dosage: UNK
  7. OMEGA 3                            /01334101/ [Concomitant]
     Dosage: 1000 MG, UNK
  8. HUMIRA [Concomitant]
     Dosage: UNK

REACTIONS (3)
  - Arthritis [Unknown]
  - Inflammation [Unknown]
  - Blister [Unknown]
